FAERS Safety Report 21506531 (Version 1)
Quarter: 2022Q4

REPORT INFORMATION
  Report Type: Spontaneous
  Country: US (occurrence: US)
  Receive Date: 20221026
  Receipt Date: 20221026
  Transmission Date: 20230113
  Serious: Yes (Other)
  Sender: FDA-Public Use
  Company Number: US-REGENERON PHARMACEUTICALS, INC.-2022-106724

PATIENT
  Sex: Female

DRUGS (1)
  1. EYLEA [Suspect]
     Active Substance: AFLIBERCEPT
     Indication: Product used for unknown indication
     Dosage: UNK, RIGHT EYE, FORMULATION: UNKNOWN
     Route: 031
     Dates: start: 202201

REACTIONS (3)
  - Eye haemorrhage [Unknown]
  - COVID-19 [Unknown]
  - Visual impairment [Unknown]

NARRATIVE: CASE EVENT DATE: 20220101
